FAERS Safety Report 10701629 (Version 2)
Quarter: 2015Q2

REPORT INFORMATION
  Report Type: Spontaneous
  Country: JP (occurrence: JP)
  Receive Date: 20150109
  Receipt Date: 20150521
  Transmission Date: 20150821
  Serious: Yes (Death, Hospitalization)
  Sender: FDA-Public Use
  Company Number: JP-BAYER-2015-003206

PATIENT
  Age: 59 Year
  Sex: Male
  Weight: 58 kg

DRUGS (7)
  1. LAC-B [Concomitant]
     Active Substance: BIFIDOBACTERIUM SPP.
     Indication: RECTAL CANCER
     Dosage: DAILY DOSE 3 G
     Route: 048
  2. LANSOPRAZOLE. [Concomitant]
     Active Substance: LANSOPRAZOLE
     Indication: PROPHYLAXIS AGAINST GASTROINTESTINAL ULCER
     Dosage: DAILY DOSE 30 MG
     Route: 048
     Dates: start: 20140324
  3. STIVARGA [Suspect]
     Active Substance: REGORAFENIB
     Indication: RECTAL CANCER
     Dosage: 120 MG, QD (FOR 3WEEKS AND OFF FOR 1 WEEK)
     Route: 048
     Dates: start: 20140324, end: 20140411
  4. HARNAL [Concomitant]
     Active Substance: TAMSULOSIN HYDROCHLORIDE
     Dosage: DAILY DOSE .2 MG
     Route: 048
  5. CALONAL [Concomitant]
     Active Substance: ACETAMINOPHEN
     Indication: RECTAL CANCER
     Dosage: DAILY DOSE 1200 MG
     Route: 048
  6. FENTANYL CITRATE. [Concomitant]
     Active Substance: FENTANYL CITRATE
     Indication: RECTAL CANCER
     Dosage: DAILY DOSE 3 MG
     Route: 062
  7. DECADRON [Suspect]
     Active Substance: DEXAMETHASONE
     Indication: MALAISE
     Dosage: DAILY DOSE 2 MG
     Route: 048
     Dates: start: 20140324, end: 20140412

REACTIONS (3)
  - Perirectal abscess [Recovered/Resolved]
  - Gastrointestinal perforation [Recovered/Resolved]
  - Rectal cancer [Fatal]

NARRATIVE: CASE EVENT DATE: 20140412
